FAERS Safety Report 15092291 (Version 1)
Quarter: 2018Q2

REPORT INFORMATION
  Report Type: Spontaneous
  Country: ZA (occurrence: ZA)
  Receive Date: 20180629
  Receipt Date: 20180629
  Transmission Date: 20180711
  Serious: Yes (Other)
  Sender: FDA-Public Use
  Company Number: ZA-ASTRAZENECA-2018SE81976

PATIENT
  Sex: Female

DRUGS (1)
  1. FORXIGA [Suspect]
     Active Substance: DAPAGLIFLOZIN
     Indication: TYPE 1 DIABETES MELLITUS
     Dosage: DOSE UNKNOWN
     Route: 048

REACTIONS (3)
  - Diabetic ketoacidosis [Unknown]
  - Product use in unapproved indication [Unknown]
  - Off label use [Unknown]
